FAERS Safety Report 8278043-X (Version None)
Quarter: 2012Q2

REPORT INFORMATION
  Report Type: 
  Country: None (occurrence: None)
  Receive Date: 20120412
  Receipt Date: 20120403
  Transmission Date: 20120825
  Serious: Yes (Hospitalization)
  Sender: FDA-Public Use
  Company Number: GB-AMGEN-GBRSP2012016428

PATIENT
  Age: 71 Year
  Sex: Male
  Weight: 79.7 kg

DRUGS (9)
  1. NEULASTA [Suspect]
     Indication: NON-HODGKIN'S LYMPHOMA
     Dosage: 6 MG, UNK
     Route: 058
     Dates: start: 20090325, end: 20090402
  2. PREDNISONE TAB [Suspect]
     Indication: NON-HODGKIN'S LYMPHOMA
     Dosage: 100 MG, UNK
     Route: 048
     Dates: start: 20090325, end: 20090329
  3. VINCRISTINE [Suspect]
     Indication: NON-HODGKIN'S LYMPHOMA
     Dosage: 2 MG, UNK
     Route: 042
     Dates: start: 20090325, end: 20090325
  4. TRAMADOL HCL [Concomitant]
     Indication: ANALGESIC THERAPY
     Dosage: 100 MG, PRN
     Route: 048
     Dates: start: 20090325
  5. RITUXIMAB [Suspect]
     Indication: NON-HODGKIN'S LYMPHOMA
     Dosage: 705 MG, UNK
     Route: 042
     Dates: start: 20090325, end: 20090325
  6. CYCLOPHOSPHAMIDE [Suspect]
     Indication: NON-HODGKIN'S LYMPHOMA
     Dosage: 1410 MG, UNK
     Route: 042
     Dates: start: 20090325, end: 20090325
  7. COTRIM [Concomitant]
     Indication: ANTIFUNGAL PROPHYLAXIS
     Dosage: 960 MG, 3 TIMES/WK
     Route: 048
     Dates: start: 20090325
  8. METOCLOPRAMIDE [Concomitant]
     Dosage: 10 MG, QD
     Route: 048
     Dates: start: 20090325, end: 20090404
  9. GEMCITABINE [Suspect]
     Indication: NON-HODGKIN'S LYMPHOMA
     Dosage: 1880 MG, UNK
     Route: 042
     Dates: start: 20090325, end: 20090401

REACTIONS (6)
  - PYREXIA [None]
  - CHEST PAIN [None]
  - PLATELET COUNT DECREASED [None]
  - HAEMOGLOBIN DECREASED [None]
  - TROPONIN INCREASED [None]
  - INFECTION [None]
